FAERS Safety Report 5096320-0 (Version None)
Quarter: 2006Q3

REPORT INFORMATION
  Report Type: 
  Country: None (occurrence: None)
  Receive Date: 20060905
  Receipt Date: 20060825
  Transmission Date: 20061208
  Serious: Yes (Hospitalization, Disabling)
  Sender: FDA-Public Use
  Company Number: US-AVENTIS-200614546EU

PATIENT
  Age: 77 Year
  Sex: Male

DRUGS (8)
  1. LASIX [Suspect]
     Route: 048
     Dates: start: 20051215, end: 20051227
  2. ENBREL [Suspect]
     Indication: RHEUMATOID ARTHRITIS
     Route: 058
     Dates: start: 20051129, end: 20060314
  3. NIFEDIPINE [Concomitant]
  4. MOSAPRIDE CITRATE [Concomitant]
  5. TEPRENONE [Concomitant]
  6. LANSOPRAZOLE [Concomitant]
  7. CALCITRIOL [Concomitant]
  8. CALCIUM LACTATE [Concomitant]

REACTIONS (2)
  - CONDITION AGGRAVATED [None]
  - RENAL FAILURE [None]
